FAERS Safety Report 5833094-7 (Version None)
Quarter: 2008Q3

REPORT INFORMATION
  Report Type: 
  Country: None (occurrence: None)
  Receive Date: 20080805
  Receipt Date: 20080729
  Transmission Date: 20090109
  Serious: Yes (Hospitalization)
  Sender: FDA-Public Use
  Company Number: JP-ASTRAZENECA-2008AP05439

PATIENT
  Age: 51 Year
  Sex: Male

DRUGS (4)
  1. MEROPENEM [Suspect]
     Indication: INFECTION PROPHYLAXIS
     Route: 041
     Dates: start: 20070730
  2. FOY [Concomitant]
     Indication: INFECTION PROPHYLAXIS
     Route: 041
     Dates: start: 20070730
  3. FOY [Concomitant]
     Route: 041
     Dates: start: 20070730
  4. MORPHINE HCL ELIXIR [Concomitant]
     Indication: INFECTION PROPHYLAXIS
     Route: 041
     Dates: start: 20070730

REACTIONS (1)
  - GASTROENTERITIS STAPHYLOCOCCAL [None]
